FAERS Safety Report 22180379 (Version 1)
Quarter: 2023Q2

REPORT INFORMATION
  Report Type: Spontaneous
  Country: US (occurrence: US)
  Receive Date: 20230406
  Receipt Date: 20230406
  Transmission Date: 20230721
  Serious: No
  Sender: FDA-Public Use
  Company Number: US-GSKCCFUS-Case-01668716_AE-94185

PATIENT
  Sex: Male

DRUGS (1)
  1. TRELEGY ELLIPTA [Suspect]
     Active Substance: FLUTICASONE FUROATE\UMECLIDINIUM BROMIDE\VILANTEROL TRIFENATATE
     Indication: Cough
     Dosage: 200/62.5/25MCG

REACTIONS (4)
  - Wrong technique in device usage process [Unknown]
  - Product label confusion [Unknown]
  - Product use in unapproved indication [Unknown]
  - Product prescribing issue [Unknown]
